FAERS Safety Report 5989642-X (Version None)
Quarter: 2008Q4

REPORT INFORMATION
  Report Type: 
  Country: None (occurrence: None)
  Receive Date: 20081208
  Receipt Date: 20081127
  Transmission Date: 20090506
  Serious: Yes (Death, Hospitalization)
  Sender: FDA-Public Use
  Company Number: CLOF-1000341

PATIENT
  Sex: Male
  Weight: 75 kg

DRUGS (4)
  1. EVOLTRA (CLOFARABINE) SOLUTION FOR INFUSION [Suspect]
     Indication: ACUTE LEUKAEMIA
     Dosage: 20 MG/M2, QD, INTRAVENOUS
     Route: 042
     Dates: start: 20081105, end: 20081107
  2. CYCLOPHOSPHAMIDE [Concomitant]
  3. ZOVIRAX [Concomitant]
  4. DIANICOTYL (ISONAZID) [Concomitant]

REACTIONS (10)
  - BLOOD POTASSIUM DECREASED [None]
  - BRADYCARDIA [None]
  - CAPILLARY LEAK SYNDROME [None]
  - HAEMOPTYSIS [None]
  - HYPOTENSION [None]
  - LUNG DISORDER [None]
  - PERICARDITIS [None]
  - SEPSIS [None]
  - SYSTEMIC INFLAMMATORY RESPONSE SYNDROME [None]
  - TUMOUR LYSIS SYNDROME [None]
